FAERS Safety Report 4741986-5 (Version None)
Quarter: 2005Q3

REPORT INFORMATION
  Report Type: 
  Country: None (occurrence: None)
  Receive Date: 20050801
  Receipt Date: 20040726
  Transmission Date: 20060218
  Serious: Yes (Other)
  Sender: FDA-Public Use
  Company Number: 208082

PATIENT
  Sex: Female

DRUGS (4)
  1. RITUXAN [Suspect]
     Indication: HAEMOLYTIC ANAEMIA
     Dosage: 700 MG, SINGLE, INTRAVENOUS
     Route: 042
     Dates: start: 20040722, end: 20040722
  2. BENADRYL [Concomitant]
  3. TYLENOL [Concomitant]
  4. RITUXAN [Suspect]

REACTIONS (2)
  - DYSPNOEA [None]
  - THROAT IRRITATION [None]
